FAERS Safety Report 5882628-5 (Version None)
Quarter: 2008Q3

REPORT INFORMATION
  Report Type: 
  Country: None (occurrence: None)
  Receive Date: 20080913
  Receipt Date: 20080811
  Transmission Date: 20090109
  Serious: No
  Sender: FDA-Public Use
  Company Number: US-ABBOTT-08P-163-0469886-00

PATIENT
  Sex: Female
  Weight: 83.99 kg

DRUGS (6)
  1. HUMIRA [Suspect]
     Indication: CROHN'S DISEASE
     Route: 058
     Dates: start: 20080728, end: 20080728
  2. HUMIRA [Suspect]
     Route: 058
  3. HUMIRA [Suspect]
     Route: 058
  4. THYROID TAB [Concomitant]
     Indication: THYROID DISORDER
     Dosage: 90 MCG DAILY
     Route: 048
     Dates: start: 19760101
  5. MESALAMINE [Concomitant]
     Indication: CROHN'S DISEASE
     Dosage: 3-400MG TABS IN AM,3-400MG TABS AT NIGHT
     Route: 048
  6. ESTROGENS CONJUGATED [Concomitant]
     Indication: OESTROGEN REPLACEMENT THERAPY
     Route: 061

REACTIONS (2)
  - INJECTION SITE URTICARIA [None]
  - URTICARIA [None]
